FAERS Safety Report 13673276 (Version 2)
Quarter: 2017Q3

REPORT INFORMATION
  Report Type: Spontaneous
  Country: IT (occurrence: IT)
  Receive Date: 20170621
  Receipt Date: 20170710
  Transmission Date: 20171127
  Serious: Yes (Other)
  Sender: FDA-Public Use
  Company Number: IT-EISAI MEDICAL RESEARCH-EC-2017-028438

PATIENT
  Age: 52 Year
  Sex: Female
  Weight: 50 kg

DRUGS (6)
  1. PARIET [Suspect]
     Active Substance: RABEPRAZOLE SODIUM
     Indication: INTENTIONAL SELF-INJURY
     Dosage: UNKNOWN
     Route: 048
     Dates: start: 20170612, end: 20170612
  2. DELORAZEPAM [Suspect]
     Active Substance: DELORAZEPAM
     Dosage: UNKNOWN
     Route: 048
     Dates: start: 20170612, end: 20170612
  3. DELORAZEPAM [Suspect]
     Active Substance: DELORAZEPAM
     Indication: INTENTIONAL SELF-INJURY
     Dosage: UNKNOWN
     Route: 048
     Dates: start: 20170612, end: 20170612
  4. DULOXETINE HYDROCHLORIDE. [Suspect]
     Active Substance: DULOXETINE HYDROCHLORIDE
     Indication: INTENTIONAL SELF-INJURY
     Dosage: UNKNOWN
     Route: 048
     Dates: start: 20170612, end: 20170612
  5. CITALOPRAM [Suspect]
     Active Substance: CITALOPRAM HYDROBROMIDE
     Indication: INTENTIONAL SELF-INJURY
     Dosage: UNKNOWN
     Route: 048
     Dates: start: 20170612, end: 20170612
  6. DELORAZEPAM [Suspect]
     Active Substance: DELORAZEPAM
     Dosage: UNKNOWN
     Route: 048
     Dates: start: 20170612, end: 20170612

REACTIONS (4)
  - Intentional self-injury [Unknown]
  - Intentional product misuse [Unknown]
  - Sopor [Unknown]
  - Sluggishness [Unknown]

NARRATIVE: CASE EVENT DATE: 20170612
